FAERS Safety Report 9190267 (Version 3)
Quarter: 2015Q1

REPORT INFORMATION
  Report Type: Spontaneous
  Country: GB (occurrence: None)
  Receive Date: 20130322
  Receipt Date: 20150309
  Transmission Date: 20150721
  Serious: Yes (Other)
  Sender: FDA-Public Use
  Company Number: 2013MPI00141

PATIENT
  Age: 41 Year
  Sex: Male

DRUGS (1)
  1. ADCETRIS [Suspect]
     Active Substance: BRENTUXIMAB VEDOTIN
     Indication: HODGKIN^S DISEASE
     Route: 058
     Dates: start: 20120907, end: 20121211

REACTIONS (10)
  - Nausea [None]
  - Neuropathy peripheral [None]
  - Decreased appetite [None]
  - Fatigue [None]
  - Influenza [None]
  - Thrombocytopenia [None]
  - Haemoglobin abnormal [None]
  - Pulmonary function test decreased [None]
  - Device related infection [None]
  - Neutropenia [None]
